FAERS Safety Report 19565392 (Version 2)
Quarter: 2022Q1

REPORT INFORMATION
  Report Type: Spontaneous
  Country: CA (occurrence: CA)
  Receive Date: 20210714
  Receipt Date: 20220321
  Transmission Date: 20220423
  Serious: Yes (Hospitalization, Other)
  Sender: FDA-Public Use
  Company Number: CA-VALIDUS PHARMACEUTICALS LLC-VDP-2021-000070

PATIENT

DRUGS (3)
  1. FUROSEMIDE [Suspect]
     Active Substance: FUROSEMIDE
     Indication: Cardiac failure congestive
     Dosage: UNK
     Route: 065
  2. METHOTREXATE [Suspect]
     Active Substance: METHOTREXATE
     Indication: Dermatitis exfoliative generalised
     Dosage: 7.5 MILLIGRAM, Q12H
     Route: 048
  3. METHOTREXATE [Suspect]
     Active Substance: METHOTREXATE
     Indication: Dermatitis atopic

REACTIONS (6)
  - Skin necrosis [Recovered/Resolved]
  - Pancytopenia [Unknown]
  - Neutropenia [Recovered/Resolved]
  - Drug interaction [Unknown]
  - Accidental exposure to product [Unknown]
  - Extra dose administered [Unknown]
